FAERS Safety Report 6116586-5 (Version None)
Quarter: 2009Q1

REPORT INFORMATION
  Report Type: 
  Country: None (occurrence: None)
  Receive Date: 20090314
  Receipt Date: 20081216
  Transmission Date: 20090719
  Serious: No
  Sender: FDA-Public Use
  Company Number: US-ABBOTT-08P-163-0493405-00

PATIENT
  Sex: Female

DRUGS (2)
  1. HUMIRA [Suspect]
     Indication: PSORIASIS
     Route: 058
     Dates: start: 20081001
  2. UNKNOWN PSORIASIS LOTIONS [Concomitant]
     Indication: PSORIASIS
     Route: 061

REACTIONS (2)
  - DRUG EFFECT DECREASED [None]
  - PSORIASIS [None]
